FAERS Safety Report 13521328 (Version 1)
Quarter: 2017Q2

REPORT INFORMATION
  Report Type: Spontaneous
  Country: US (occurrence: US)
  Receive Date: 20170508
  Receipt Date: 20170508
  Transmission Date: 20170830
  Serious: No
  Sender: FDA-Public Use
  Company Number: US-PFIZER INC-2017193009

PATIENT
  Sex: Female

DRUGS (1)
  1. XELJANZ XR [Suspect]
     Active Substance: TOFACITINIB CITRATE
     Dosage: 11 MG, UNK

REACTIONS (16)
  - Back pain [Unknown]
  - Arthralgia [Unknown]
  - Dry eye [Unknown]
  - Alopecia [Unknown]
  - Dry skin [Unknown]
  - Urine output increased [Unknown]
  - Gait disturbance [Unknown]
  - Anxiety [Unknown]
  - Dry mouth [Unknown]
  - Weight decreased [Unknown]
  - Muscle spasms [Unknown]
  - Myalgia [Unknown]
  - Pollakiuria [Unknown]
  - Joint stiffness [Unknown]
  - Insomnia [Unknown]
  - Hyperaesthesia [Unknown]
